FAERS Safety Report 16303434 (Version 2)
Quarter: 2019Q2

REPORT INFORMATION
  Report Type: Spontaneous
  Country: DE (occurrence: DE)
  Receive Date: 20190513
  Receipt Date: 20190524
  Transmission Date: 20190711
  Serious: Yes (Other)
  Sender: FDA-Public Use
  Company Number: DE-TEVA-2019-DE-1050790

PATIENT
  Sex: Female

DRUGS (5)
  1. CANDESARTAN 8 MG [Concomitant]
     Active Substance: CANDESARTAN
  2. ESTREVA 0,1 %, GEL [Suspect]
     Active Substance: ESTRADIOL
     Indication: OESTROGEN DEFICIENCY
     Dosage: (1 HUB, DAILY)
     Route: 003
     Dates: start: 20190312, end: 20190410
  3. UTROGEST [Concomitant]
     Active Substance: PROGESTERONE
     Dosage: 100 MILLIGRAM DAILY;
     Route: 048
     Dates: start: 20181209, end: 20190226
  4. ESTREVA 0,1 %, GEL [Suspect]
     Active Substance: ESTRADIOL
     Indication: EYE SYMPTOM
     Dosage: (1 HUB, DAILY)
     Route: 003
     Dates: start: 20181209, end: 20190226
  5. UTROGEST [Concomitant]
     Active Substance: PROGESTERONE
     Indication: PRODUCT USED FOR UNKNOWN INDICATION
     Dosage: 100 MILLIGRAM DAILY;
     Route: 048
     Dates: start: 20190312, end: 20190410

REACTIONS (3)
  - Haemorrhage [Recovered/Resolved]
  - Product quality issue [Unknown]
  - Therapeutic product effect decreased [Unknown]

NARRATIVE: CASE EVENT DATE: 20190410
